FAERS Safety Report 11829831 (Version 1)
Quarter: 2015Q4

REPORT INFORMATION
  Report Type: Spontaneous
  Country: US (occurrence: US)
  Receive Date: 20151212
  Receipt Date: 20151212
  Transmission Date: 20160305
  Serious: No
  Sender: FDA-Public Use
  Company Number: US-BAUSCH-BL-2014-009776

PATIENT
  Sex: Female
  Weight: 72.64 kg

DRUGS (3)
  1. CARAC [Suspect]
     Active Substance: FLUOROURACIL
     Route: 061
     Dates: start: 20141101
  2. CARAC [Suspect]
     Active Substance: FLUOROURACIL
     Indication: KERATITIS
     Route: 061
     Dates: start: 201404, end: 2014
  3. LEVOXYL [Concomitant]
     Active Substance: LEVOTHYROXINE SODIUM
     Indication: PRODUCT USED FOR UNKNOWN INDICATION

REACTIONS (3)
  - Erythema [Recovering/Resolving]
  - Incorrect product storage [Unknown]
  - Dermatitis [Recovered/Resolved]
